FAERS Safety Report 4987851-X (Version None)
Quarter: 2006Q2

REPORT INFORMATION
  Report Type: 
  Country: None (occurrence: None)
  Receive Date: 20060424
  Receipt Date: 20060410
  Transmission Date: 20061013
  Serious: Yes (Hospitalization)
  Sender: FDA-Public Use
  Company Number: CLOF-10210

PATIENT
  Age: 67 Year
  Sex: Male

DRUGS (2)
  1. CLOFARABINE [Suspect]
     Indication: ACUTE MYELOID LEUKAEMIA
     Dosage: 25 MG/M2 DAILY
  2. DAUNORUBICIN [Suspect]
     Indication: ACUTE MYELOID LEUKAEMIA
     Dosage: 50 MG/M2 DAILY

REACTIONS (7)
  - ABNORMAL DREAMS [None]
  - AGITATION [None]
  - CONFUSIONAL STATE [None]
  - DYSARTHRIA [None]
  - NEUTROPENIC SEPSIS [None]
  - PARANOIA [None]
  - RASH [None]
